FAERS Safety Report 8775978 (Version 2)
Quarter: 2013Q1

REPORT INFORMATION
  Report Type: Report from Study
  Country: DE (occurrence: DE)
  Receive Date: 20120910
  Receipt Date: 20130315
  Transmission Date: 20140127
  Serious: Yes (Hospitalization, Disabling, Other)
  Sender: FDA-Public Use
  Company Number: DE-MERCK-1209DEU002412

PATIENT
  Age: 74 Year
  Sex: Male
  Weight: 71.6 kg

DRUGS (3)
  1. SIMVASTATIN [Suspect]
     Indication: ACUTE CORONARY SYNDROME
     Dosage: 40 MG, QD
     Route: 048
     Dates: start: 20090524
  2. RAMIPRIL [Concomitant]
     Dosage: 2.5 MG, QD
     Route: 048
     Dates: start: 20090523
  3. ASPIRIN [Concomitant]
     Dosage: 100 MG, QD
     Route: 048
     Dates: start: 20120523

REACTIONS (1)
  - Bladder cancer [Recovered/Resolved]
